FAERS Safety Report 9670191 (Version 4)
Quarter: 2018Q4

REPORT INFORMATION
  Report Type: Spontaneous
  Country: US (occurrence: US)
  Receive Date: 20131105
  Receipt Date: 20181219
  Transmission Date: 20190205
  Serious: Yes (Other)
  Sender: FDA-Public Use
  Company Number: US-TEVA-442436USA

PATIENT
  Age: 23 Year
  Sex: Female
  Weight: 88.53 kg

DRUGS (1)
  1. PLAN B ONE-STEP [Suspect]
     Active Substance: LEVONORGESTREL
     Indication: POST COITAL CONTRACEPTION
     Dosage: 1.5 MILLIGRAM DAILY;
     Route: 048
     Dates: start: 20131015, end: 20131015

REACTIONS (8)
  - Maternal exposure before pregnancy [Unknown]
  - Abortion induced [Recovered/Resolved]
  - Metrorrhagia [Recovered/Resolved]
  - Vaginal discharge [Recovered/Resolved]
  - Dysmenorrhoea [Recovered/Resolved]
  - Breast tenderness [Recovered/Resolved]
  - Skin disorder [Recovered/Resolved]
  - Nausea [Recovered/Resolved]

NARRATIVE: CASE EVENT DATE: 20131028
